FAERS Safety Report 6580349-7 (Version None)
Quarter: 2010Q1

REPORT INFORMATION
  Report Type: 
  Country: None (occurrence: None)
  Receive Date: 20100212
  Receipt Date: 20100201
  Transmission Date: 20100710
  Serious: Yes (Other)
  Sender: FDA-Public Use
  Company Number: PHEH2007US11535

PATIENT
  Sex: Female
  Weight: 36.281 kg

DRUGS (3)
  1. AREDIA [Suspect]
     Dosage: UNK
     Dates: end: 20050101
  2. ARESTIN [Concomitant]
     Dosage: UNK
     Dates: end: 20040101
  3. SEPTOCAINE [Concomitant]
     Dosage: UNK
     Dates: start: 20040517

REACTIONS (24)
  - ABSCESS DRAINAGE [None]
  - ABSCESS ORAL [None]
  - ANAEMIA [None]
  - ANHEDONIA [None]
  - ANXIETY [None]
  - BONE DISORDER [None]
  - BONE OPERATION [None]
  - DENTAL PROSTHESIS PLACEMENT [None]
  - DIARRHOEA [None]
  - EMPHYSEMA [None]
  - ENDODONTIC PROCEDURE [None]
  - FATIGUE [None]
  - GASTRINOMA [None]
  - INJURY [None]
  - MYELOPROLIFERATIVE DISORDER [None]
  - OSTEOMYELITIS [None]
  - OSTEONECROSIS [None]
  - OSTEOPOROSIS [None]
  - PAIN [None]
  - PERIODONTAL DISEASE [None]
  - SPINAL COMPRESSION FRACTURE [None]
  - TOOTH EXTRACTION [None]
  - ULCER HAEMORRHAGE [None]
  - WEIGHT DECREASED [None]
